FAERS Safety Report 23569516 (Version 1)
Quarter: 2024Q1

REPORT INFORMATION
  Report Type: Spontaneous
  Country: US (occurrence: US)
  Receive Date: 20240227
  Receipt Date: 20240227
  Transmission Date: 20240410
  Serious: Yes (Death, Other)
  Sender: FDA-Public Use
  Company Number: US-JNJFOC-20240271003

PATIENT
  Age: 61 Year
  Sex: Male

DRUGS (4)
  1. REMICADE [Suspect]
     Active Substance: INFLIXIMAB
     Indication: Graft versus host disease
     Route: 041
  2. INFLIXIMAB-QBTX [Suspect]
     Active Substance: INFLIXIMAB-QBTX
     Indication: Graft versus host disease
     Route: 065
  3. RUXOLITINIB [Suspect]
     Active Substance: RUXOLITINIB
     Indication: Product used for unknown indication
     Route: 065
  4. RUXOLITINIB [Suspect]
     Active Substance: RUXOLITINIB
     Route: 065

REACTIONS (5)
  - Acute graft versus host disease [Fatal]
  - Thrombocytopenia [Unknown]
  - Gastrointestinal mucosal exfoliation [Unknown]
  - Faecal volume increased [Unknown]
  - Off label use [Unknown]
